FAERS Safety Report 12877878 (Version 1)
Quarter: 2016Q4

REPORT INFORMATION
  Report Type: Spontaneous
  Country: US (occurrence: US)
  Receive Date: 20161024
  Receipt Date: 20161024
  Transmission Date: 20170207
  Serious: No
  Sender: FDA-Public Use
  Company Number: US-ASTRAZENECA-2016SF05610

PATIENT
  Age: 730 Month
  Sex: Female
  Weight: 50.3 kg

DRUGS (10)
  1. PAIN MEDICATION [Concomitant]
     Active Substance: UNSPECIFIED INGREDIENT
  2. CANCER PILL [Concomitant]
  3. LATANOPROST. [Concomitant]
     Active Substance: LATANOPROST
     Indication: OCULAR DISCOMFORT
     Route: 047
     Dates: start: 201508
  4. BLOOD PRESSURE MEDICATION [Concomitant]
     Active Substance: UNSPECIFIED INGREDIENT
     Dates: start: 201508
  5. BLOOD THINNER MEDICATION [Concomitant]
     Dates: start: 201508
  6. TUDORZA PRESSAIR [Suspect]
     Active Substance: ACLIDINIUM BROMIDE
     Indication: EMPHYSEMA
     Route: 055
     Dates: start: 20160916
  7. VENTOLIN HVA ALBUTEROL [Concomitant]
     Indication: INHALATION THERAPY
     Dosage: EVERY 4 - 6 HOURS
     Dates: start: 2009
  8. OSTEOPEROSIS MEDICATION [Concomitant]
  9. SYMBICORT [Suspect]
     Active Substance: BUDESONIDE\FORMOTEROL FUMARATE DIHYDRATE
     Indication: EMPHYSEMA
     Dosage: 160/4.5 MCG 1 INHALATION, TWO TIMES A DAY
     Route: 055
     Dates: start: 201508
  10. SPIRIVA [Concomitant]
     Active Substance: TIOTROPIUM BROMIDE MONOHYDRATE
     Dates: start: 201508, end: 201609

REACTIONS (9)
  - Device failure [Unknown]
  - Pain in extremity [Not Recovered/Not Resolved]
  - Gait disturbance [Not Recovered/Not Resolved]
  - Weight increased [Unknown]
  - Device defective [Unknown]
  - Off label use [Unknown]
  - Arterial occlusive disease [Unknown]
  - Intentional product misuse [Unknown]
  - Dyspnoea [Not Recovered/Not Resolved]

NARRATIVE: CASE EVENT DATE: 201508
